FAERS Safety Report 11031872 (Version 2)
Quarter: 2015Q2

REPORT INFORMATION
  Report Type: Spontaneous
  Country: JP (occurrence: JP)
  Receive Date: 20150415
  Receipt Date: 20150420
  Transmission Date: 20150821
  Serious: Yes (Hospitalization, Other)
  Sender: FDA-Public Use
  Company Number: JP-GLAXOSMITHKLINE-JP2015JPN043787

PATIENT
  Age: 83 Year
  Sex: Male

DRUGS (13)
  1. OMEPRAZOLE. [Concomitant]
     Active Substance: OMEPRAZOLE
     Dosage: 20 MG, QD
  2. COMTAN [Concomitant]
     Active Substance: ENTACAPONE
     Dosage: 100 MG, TID
  3. REQUIP [Suspect]
     Active Substance: ROPINIROLE HYDROCHLORIDE
     Indication: PARKINSON^S DISEASE
     Dosage: 4 MG, BID
     Route: 048
     Dates: start: 201312, end: 201503
  4. FLIVAS [Concomitant]
     Active Substance: NAFTOPIDIL
     Dosage: 25 MG, 1D
  5. SENNOSIDE [Concomitant]
     Active Substance: SENNOSIDES
     Dosage: 2 DF, 1D
  6. DOPS OD [Concomitant]
     Active Substance: DROXIDOPA
     Dosage: 100 MG, 1D
  7. REQUIP [Concomitant]
     Active Substance: ROPINIROLE HYDROCHLORIDE
     Indication: PARKINSON^S DISEASE
     Dosage: UNK
  8. FP-OD [Concomitant]
     Active Substance: SELEGILINE HYDROCHLORIDE
     Dosage: 5 MG, 1D
  9. DOPACOL [Concomitant]
     Active Substance: CARBIDOPA\LEVODOPA
     Dosage: 300 MG, 1D
  10. DOMPERIDONE [Concomitant]
     Active Substance: DOMPERIDONE
     Dosage: 30 MG, 1D
  11. JANUVIA [Concomitant]
     Active Substance: SITAGLIPTIN PHOSPHATE
     Dosage: 50 MG, QD
  12. PAMILCON [Concomitant]
     Active Substance: GLYBURIDE
     Dosage: 1.25 MG, 1D
  13. MAGMITT [Concomitant]
     Active Substance: MAGNESIUM OXIDE
     Dosage: 500 MG, 1D

REACTIONS (2)
  - Dysphagia [Recovering/Resolving]
  - Pneumonia aspiration [Unknown]

NARRATIVE: CASE EVENT DATE: 2014
